FAERS Safety Report 4303206-5 (Version None)
Quarter: 2004Q1

REPORT INFORMATION
  Report Type: 
  Country: None (occurrence: None)
  Receive Date: 20040223
  Receipt Date: 20040211
  Transmission Date: 20041129
  Serious: Yes (Other)
  Sender: FDA-Public Use
  Company Number: S04-SGP-00590-01

PATIENT
  Age: 83 Year
  Sex: Male

DRUGS (9)
  1. EBIXA (MEMANTINE) [Suspect]
     Indication: DEMENTIA ALZHEIMER'S TYPE
     Dosage: 5 MG BID PO
     Route: 048
     Dates: start: 20030920, end: 20031009
  2. EBIXA (MEMANTINE) [Suspect]
     Indication: DEMENTIA ALZHEIMER'S TYPE
     Dosage: 5 MG QD PO
     Route: 048
     Dates: start: 20030913, end: 20030919
  3. EBIXA (MEMANTINE) [Suspect]
     Indication: DEMENTIA ALZHEIMER'S TYPE
     Dates: start: 20040202, end: 20040202
  4. ARICEPT [Concomitant]
  5. THEOPHYLLINE [Concomitant]
  6. SALBUTAMOL [Concomitant]
  7. GINGKOMIN (GINKGO BILOBA) [Concomitant]
  8. FOLIC ACID [Concomitant]
  9. VITAMIN E [Concomitant]

REACTIONS (3)
  - COUGH [None]
  - HAEMORRHAGE [None]
  - TRACHEOSTOMY MALFUNCTION [None]
